FAERS Safety Report 20187327 (Version 1)
Quarter: 2021Q4

REPORT INFORMATION
  Report Type: Spontaneous
  Country: US (occurrence: None)
  Receive Date: 20211214
  Receipt Date: 20211214
  Transmission Date: 20220303
  Serious: Yes (Hospitalization)
  Sender: FDA-Public Use
  Company Number: None

PATIENT
  Age: 64 Year
  Sex: Female
  Weight: 92.7 kg

DRUGS (2)
  1. MEROPENEM [Suspect]
     Active Substance: MEROPENEM
     Indication: Post procedural infection
     Dosage: FREQUENCY : 3 TIMES A DAY;?
     Route: 042
  2. MEROPENEM [Suspect]
     Active Substance: MEROPENEM
     Indication: Joint arthroplasty

REACTIONS (3)
  - Rash [None]
  - Injection site reaction [None]
  - Device related infection [None]

NARRATIVE: CASE EVENT DATE: 20211201
